FAERS Safety Report 5346411-1 (Version None)
Quarter: 2007Q2

REPORT INFORMATION
  Report Type: 
  Country: None (occurrence: None)
  Receive Date: 20070605
  Receipt Date: 20070529
  Transmission Date: 20071010
  Serious: Yes (Other)
  Sender: FDA-Public Use
  Company Number: DE-SHR-DE-2007-018402

PATIENT
  Age: 42 Year
  Sex: Female
  Weight: 57 kg

DRUGS (2)
  1. MIRENA [Suspect]
     Dosage: 20 A?G/DAY, CONT
     Route: 015
     Dates: start: 19990101, end: 20050101
  2. MIRENA [Suspect]
     Dosage: 20 A?G/DAY, CONT
     Route: 015
     Dates: start: 20050101

REACTIONS (3)
  - BLOOD PRESSURE DIASTOLIC INCREASED [None]
  - MIGRAINE [None]
  - THROMBOPHLEBITIS SUPERFICIAL [None]
